FAERS Safety Report 20101616 (Version 2)
Quarter: 2021Q4

REPORT INFORMATION
  Report Type: Other
  Country: MX (occurrence: None)
  Receive Date: 20211123
  Receipt Date: 20211201
  Transmission Date: 20220304
  Serious: Yes (Disabling)
  Sender: FDA-Public Use
  Company Number: MX-ROCHE-2780360

PATIENT
  Sex: Female
  Weight: 65 kg

DRUGS (11)
  1. TOCILIZUMAB [Suspect]
     Active Substance: TOCILIZUMAB
     Indication: Rheumatoid arthritis
     Dosage: 200MG/10ML
     Route: 042
     Dates: start: 20150915
  2. TOCILIZUMAB [Suspect]
     Active Substance: TOCILIZUMAB
     Dosage: 200MG/10ML
     Route: 042
     Dates: start: 2018
  3. ACETAMINOPHEN [Concomitant]
     Active Substance: ACETAMINOPHEN
  4. DEFLAZACORT [Concomitant]
     Active Substance: DEFLAZACORT
  5. PREGABALIN [Concomitant]
     Active Substance: PREGABALIN
  6. CELECOXIB [Concomitant]
     Active Substance: CELECOXIB
     Dosage: DOSE: 1 TABLET
     Route: 048
     Dates: start: 2012
  7. ACEMETACIN [Concomitant]
     Active Substance: ACEMETACIN
     Route: 048
     Dates: start: 2012
  8. LEFLUNOMIDE [Concomitant]
     Active Substance: LEFLUNOMIDE
     Route: 048
     Dates: start: 2012
  9. CALCITRIOL [Concomitant]
     Active Substance: CALCITRIOL
     Route: 048
     Dates: start: 2012
  10. OMEPRAZOLE [Concomitant]
     Active Substance: OMEPRAZOLE
  11. ENALAPRIL [Concomitant]
     Active Substance: ENALAPRIL

REACTIONS (10)
  - Gait disturbance [Not Recovered/Not Resolved]
  - Pain in extremity [Not Recovered/Not Resolved]
  - Burning sensation [Not Recovered/Not Resolved]
  - Arthralgia [Not Recovered/Not Resolved]
  - Insomnia [Unknown]
  - Movement disorder [Unknown]
  - Dyspepsia [Unknown]
  - Abdominal pain upper [Unknown]
  - Hypertension [Unknown]
  - Neuralgia [Not Recovered/Not Resolved]

NARRATIVE: CASE EVENT DATE: 20190101
